FAERS Safety Report 5879445-9 (Version None)
Quarter: 2008Q3

REPORT INFORMATION
  Report Type: 
  Country: None (occurrence: None)
  Receive Date: 20080912
  Receipt Date: 20080909
  Transmission Date: 20090109
  Serious: Yes (Hospitalization)
  Sender: FDA-Public Use
  Company Number: B0536813A

PATIENT
  Age: 74 Year
  Sex: Female

DRUGS (5)
  1. LANOXIN [Suspect]
     Indication: DRUG USE FOR UNKNOWN INDICATION
     Dosage: .25MG PER DAY
     Route: 048
     Dates: start: 20080101, end: 20080712
  2. CORGARD [Suspect]
     Indication: DRUG USE FOR UNKNOWN INDICATION
     Dosage: 80MG PER DAY
     Route: 048
     Dates: start: 20080101, end: 20080713
  3. ALLOPURINOL [Concomitant]
     Route: 048
     Dates: start: 20080101, end: 20080713
  4. TORVAST [Concomitant]
     Dosage: 10MG PER DAY
     Route: 048
     Dates: start: 20080101, end: 20080713
  5. ASPIRIN [Concomitant]
     Dosage: 100MG PER DAY
     Route: 048
     Dates: start: 20080101, end: 20080713

REACTIONS (2)
  - BRADYCARDIA [None]
  - FACIAL PALSY [None]
